FAERS Safety Report 5622065-1 (Version None)
Quarter: 2008Q1

REPORT INFORMATION
  Report Type: 
  Country: None (occurrence: None)
  Receive Date: 20080206
  Receipt Date: 20080128
  Transmission Date: 20080703
  Serious: Yes (Death)
  Sender: FDA-Public Use
  Company Number: 200701AGG00771

PATIENT
  Age: 82 Year
  Sex: Male
  Weight: 89 kg

DRUGS (4)
  1. AGGRASTAT [Suspect]
     Indication: CARDIAC ENZYMES INCREASED
     Dates: start: 20080115
  2. AGGRASTAT [Suspect]
     Indication: ELECTROCARDIOGRAM ST SEGMENT DEPRESSION
     Dates: start: 20080115
  3. ASPIRIN [Concomitant]
  4. HEPARIN LMW [Concomitant]

REACTIONS (4)
  - ANGINA UNSTABLE [None]
  - RALES [None]
  - SYNCOPE [None]
  - TROPONIN T INCREASED [None]
